FAERS Safety Report 7315629-0 (Version None)
Quarter: 2011Q1

REPORT INFORMATION
  Report Type: 
  Country: None (occurrence: None)
  Receive Date: 20110225
  Receipt Date: 20110215
  Transmission Date: 20110831
  Serious: Yes (Death, Life-Threatening, Hospitalization, Disabling)
  Sender: FDA-Public Use
  Company Number: US-ROCHE-511233

PATIENT
  Sex: Female
  Weight: 79.3 kg

DRUGS (3)
  1. CAPECITABINE [Suspect]
     Indication: COLON CANCER
     Dosage: 500 MG, BID
     Route: 048
     Dates: start: 20070531, end: 20070726
  2. OXALIPLATIN [Suspect]
     Indication: COLON CANCER
     Dosage: 155 MG, UNK
     Route: 042
     Dates: start: 20070531, end: 20070726
  3. BEVACIZUMAB [Suspect]
     Indication: COLON CANCER
     Dosage: 10 MG/KG, Q2W
     Route: 042
     Dates: start: 20070531, end: 20070726

REACTIONS (1)
  - GASTROINTESTINAL PERFORATION [None]
